FAERS Safety Report 11362553 (Version 1)
Quarter: 2015Q3

REPORT INFORMATION
  Report Type: Spontaneous
  Country: US (occurrence: US)
  Receive Date: 20150810
  Receipt Date: 20150810
  Transmission Date: 20151125
  Serious: No
  Sender: FDA-Public Use
  Company Number: GXBR2015US001680

PATIENT
  Age: 69 Year
  Sex: Male

DRUGS (14)
  1. TURMERIC [Concomitant]
     Active Substance: TURMERIC
     Indication: ANTIINFLAMMATORY THERAPY
  2. CINNAMON. [Concomitant]
     Active Substance: CINNAMON
     Indication: BLOOD GLUCOSE FLUCTUATION
     Dosage: 500 MG, QD
  3. CHOLESTYRAMINE FOR ORAL SUSPENSION USP [Suspect]
     Active Substance: CHOLESTYRAMINE
     Indication: DIARRHOEA
     Dosage: 4 G, BID
     Route: 048
     Dates: start: 20150627, end: 20150627
  4. TURMERIC [Concomitant]
     Active Substance: TURMERIC
     Indication: BLOOD CHOLESTEROL
  5. ALPHA LIPOIC ACID [Concomitant]
     Active Substance: .ALPHA.-LIPOIC ACID
     Indication: BLOOD GLUCOSE FLUCTUATION
     Dosage: 200 MG, QD
  6. COCONUT OIL [Concomitant]
     Active Substance: COCONUT OIL
     Indication: ANTIINFLAMMATORY THERAPY
  7. ALPHA LIPOIC ACID [Concomitant]
     Active Substance: .ALPHA.-LIPOIC ACID
     Indication: ANTIINFLAMMATORY THERAPY
  8. CINNAMON. [Concomitant]
     Active Substance: CINNAMON
     Indication: ANTIINFLAMMATORY THERAPY
  9. ATORVASTATIN [Concomitant]
     Active Substance: ATORVASTATIN
     Indication: BLOOD CHOLESTEROL
     Dosage: 40 MG, QD
     Dates: start: 201307
  10. TURMERIC [Concomitant]
     Active Substance: TURMERIC
     Indication: BLOOD GLUCOSE FLUCTUATION
     Dosage: 1 DF QD
  11. COCONUT OIL [Concomitant]
     Active Substance: COCONUT OIL
     Indication: BLOOD CHOLESTEROL
  12. CINNAMON. [Concomitant]
     Active Substance: CINNAMON
     Indication: BLOOD CHOLESTEROL
  13. ALPHA LIPOIC ACID [Concomitant]
     Active Substance: .ALPHA.-LIPOIC ACID
     Indication: BLOOD CHOLESTEROL
  14. COCONUT OIL [Concomitant]
     Active Substance: COCONUT OIL
     Indication: BLOOD GLUCOSE FLUCTUATION
     Dosage: 1 DF, QD

REACTIONS (4)
  - Dyspepsia [Recovered/Resolved]
  - Night sweats [Recovered/Resolved]
  - Off label use [Recovered/Resolved]
  - Blood glucose increased [Recovered/Resolved]

NARRATIVE: CASE EVENT DATE: 20150627
